FAERS Safety Report 6290832-X (Version None)
Quarter: 2009Q3

REPORT INFORMATION
  Report Type: 
  Country: None (occurrence: None)
  Receive Date: 20090729
  Receipt Date: 20090729
  Transmission Date: 20100115
  Serious: Yes (Life-Threatening)
  Sender: FDA-Public Use
  Company Number: None

PATIENT
  Sex: Male
  Weight: 106 kg

DRUGS (1)
  1. LISINOPRIL [Suspect]
     Dosage: 5 MG
     Dates: start: 20090529

REACTIONS (2)
  - ANGIOEDEMA [None]
  - DYSPNOEA [None]
